FAERS Safety Report 23993578 (Version 1)
Quarter: 2024Q2

REPORT INFORMATION
  Report Type: Report from Study
  Country: US (occurrence: US)
  Receive Date: 20240620
  Receipt Date: 20240620
  Transmission Date: 20240716
  Serious: Yes (Hospitalization)
  Sender: FDA-Public Use
  Company Number: US-Pharmaand-2024000447

PATIENT
  Sex: Female

DRUGS (1)
  1. RUBRACA [Suspect]
     Active Substance: RUCAPARIB CAMSYLATE
     Indication: Neoplasm malignant
     Dosage: 600MG (2 TABLETS OF 300MG) BY MOUTH TWICE DAILY (EVERY 12 HOURS)
     Route: 048
     Dates: start: 20240528

REACTIONS (2)
  - Blood glucose decreased [Unknown]
  - Urinary tract infection [Unknown]
